FAERS Safety Report 5046218-9 (Version None)
Quarter: 2006Q3

REPORT INFORMATION
  Report Type: 
  Country: None (occurrence: None)
  Receive Date: 20060707
  Receipt Date: 20060707
  Transmission Date: 20061208
  Serious: Yes (Other)
  Sender: FDA-Public Use
  Company Number: None

PATIENT
  Age: 25 Year
  Sex: Female
  Weight: 57.6068 kg

DRUGS (1)
  1. DOXYCYCLINE [Suspect]
     Dosage: 100 MG   ONE TIME DOSE   PO
     Route: 048
     Dates: start: 20060606, end: 20060606

REACTIONS (3)
  - PYREXIA [None]
  - RASH PAPULAR [None]
  - RASH PRURITIC [None]
